FAERS Safety Report 18582223 (Version 1)
Quarter: 2020Q4

REPORT INFORMATION
  Report Type: Spontaneous
  Country: US (occurrence: US)
  Receive Date: 20201204
  Receipt Date: 20201204
  Transmission Date: 20210114
  Serious: Yes (Life-Threatening, Disabling)
  Sender: FDA-Public Use
  Company Number: None

PATIENT
  Age: 36 Year
  Sex: Female
  Weight: 60.75 kg

DRUGS (2)
  1. KLONOPIN [Suspect]
     Active Substance: CLONAZEPAM
     Indication: ANXIETY
     Dosage: ?          QUANTITY:1 TABLET(S);?
     Route: 048
     Dates: start: 20170605, end: 20200928
  2. PROZAC [Concomitant]
     Active Substance: FLUOXETINE HYDROCHLORIDE

REACTIONS (50)
  - Drug withdrawal syndrome [None]
  - Fear [None]
  - Memory impairment [None]
  - Impaired self-care [None]
  - Decreased interest [None]
  - Depersonalisation/derealisation disorder [None]
  - Hypersensitivity [None]
  - Cognitive disorder [None]
  - Apathy [None]
  - Agoraphobia [None]
  - Nightmare [None]
  - Palpitations [None]
  - Suicidal ideation [None]
  - Decreased activity [None]
  - Distractibility [None]
  - Thought blocking [None]
  - Restlessness [None]
  - Frustration tolerance decreased [None]
  - Emotional disorder [None]
  - Hyperacusis [None]
  - Panic attack [None]
  - Depression [None]
  - Social anxiety disorder [None]
  - Time perception altered [None]
  - Tinnitus [None]
  - Vision blurred [None]
  - Impaired quality of life [None]
  - Bradyphrenia [None]
  - Judgement impaired [None]
  - Akathisia [None]
  - Negative thoughts [None]
  - Neck pain [None]
  - Photophobia [None]
  - Anxiety [None]
  - Derealisation [None]
  - Lack of satiety [None]
  - Back pain [None]
  - Tremor [None]
  - Insomnia [None]
  - Headache [None]
  - Disturbance in attention [None]
  - Dysphoria [None]
  - Decreased appetite [None]
  - Parosmia [None]
  - Amnesia [None]
  - Obsessive-compulsive disorder [None]
  - Irritability [None]
  - Anhedonia [None]
  - Myalgia [None]
  - Chest pain [None]

NARRATIVE: CASE EVENT DATE: 20201013
